FAERS Safety Report 6087113-6 (Version None)
Quarter: 2009Q1

REPORT INFORMATION
  Report Type: 
  Country: None (occurrence: None)
  Receive Date: 20090223
  Receipt Date: 20090214
  Transmission Date: 20090719
  Serious: Yes (Hospitalization)
  Sender: FDA-Public Use
  Company Number: US-ELI_LILLY_AND_COMPANY-US200803002720

PATIENT
  Sex: Male
  Weight: 99.773 kg

DRUGS (27)
  1. BYETTA [Suspect]
     Indication: TYPE 2 DIABETES MELLITUS
     Dosage: 5 UG, 2/D
     Route: 058
     Dates: start: 20050101, end: 20070101
  2. BYETTA [Suspect]
     Dosage: 10 UG, 2/D
     Route: 058
     Dates: start: 20070101, end: 20071223
  3. NOVOLIN 70/30 [Concomitant]
     Indication: DIABETES MELLITUS
     Dosage: 20 U, 2/D
     Route: 058
  4. METFORMIN [Concomitant]
     Indication: DIABETES MELLITUS
  5. METOPROLOL [Concomitant]
     Indication: DIABETES MELLITUS
     Dosage: 100 MG, 2/D
     Route: 048
     Dates: start: 20071001
  6. ADVIL LIQUI-GELS [Concomitant]
     Indication: PAIN
     Dosage: UNK, AS NEEDED
  7. TYLENOL /USA/ [Concomitant]
     Indication: PAIN
     Dosage: UNK, AS NEEDED
  8. AMBIEN [Concomitant]
  9. AGGRENOX [Concomitant]
  10. IMDUR [Concomitant]
  11. NEURONTIN [Concomitant]
  12. LYRICA [Concomitant]
  13. AMITRIPTYLINE [Concomitant]
  14. LANTUS [Concomitant]
  15. LOVASTATIN [Concomitant]
  16. LISINOPRIL [Concomitant]
  17. TEMAZEPAM [Concomitant]
  18. LASIX [Concomitant]
  19. POTASSIUM CHLORIDE [Concomitant]
  20. PROTONIX [Concomitant]
  21. NIASPAN [Concomitant]
  22. ZOCOR [Concomitant]
  23. OXYCODONE HYDROCHLORIDE W/PARACETAMOL [Concomitant]
  24. LOTREL [Concomitant]
  25. TRICOR [Concomitant]
  26. ATENOLOL [Concomitant]
  27. TRILEPTAL [Concomitant]

REACTIONS (13)
  - ABDOMINAL DISTENSION [None]
  - ABDOMINAL PAIN UPPER [None]
  - AORTIC VALVE INCOMPETENCE [None]
  - BALANCE DISORDER [None]
  - CHEST PAIN [None]
  - DECREASED APPETITE [None]
  - DIARRHOEA [None]
  - NAUSEA [None]
  - OEDEMA PERIPHERAL [None]
  - PANCREATITIS [None]
  - RENAL IMPAIRMENT [None]
  - VOMITING [None]
  - WEIGHT DECREASED [None]
